FAERS Safety Report 21603886 (Version 1)
Quarter: 2022Q4

REPORT INFORMATION
  Report Type: Spontaneous
  Country: JP (occurrence: JP)
  Receive Date: 20221116
  Receipt Date: 20221116
  Transmission Date: 20230113
  Serious: Yes (Other)
  Sender: FDA-Public Use
  Company Number: JP-OTSUKA-2022_004107

PATIENT
  Sex: Female

DRUGS (3)
  1. ABILIFY [Suspect]
     Active Substance: ARIPIPRAZOLE
     Indication: Schizophrenia
     Dosage: 3MG
     Route: 048
  2. ABILIFY [Suspect]
     Active Substance: ARIPIPRAZOLE
     Dosage: 3MG IN THE MORNING AND IN THE EVENTING, TOTAL DAILY DOSE OF 6MG
     Route: 048
     Dates: start: 2006
  3. ABILIFY [Suspect]
     Active Substance: ARIPIPRAZOLE
     Dosage: 4MG
     Route: 048

REACTIONS (8)
  - Hallucination, auditory [Unknown]
  - Oculogyric crisis [Unknown]
  - Apathy [Unknown]
  - Asthenia [Unknown]
  - Somnolence [Unknown]
  - Restlessness [Unknown]
  - Product dose omission in error [Unknown]
  - Therapy cessation [Unknown]
